FAERS Safety Report 5749502-6 (Version None)
Quarter: 2008Q2

REPORT INFORMATION
  Report Type: 
  Country: None (occurrence: None)
  Receive Date: 20080527
  Receipt Date: 20080515
  Transmission Date: 20081010
  Serious: Yes (Death)
  Sender: FDA-Public Use
  Company Number: B0521006A

PATIENT
  Age: 48 Year
  Sex: Female

DRUGS (1)
  1. TYVERB [Suspect]
     Route: 048
     Dates: end: 20080423

REACTIONS (1)
  - HAEMORRHAGIC DISORDER [None]
